FAERS Safety Report 4542818-0 (Version None)
Quarter: 2004Q4

REPORT INFORMATION
  Report Type: 
  Country: None (occurrence: None)
  Receive Date: 20041229
  Receipt Date: 20041214
  Transmission Date: 20050328
  Serious: Yes (Hospitalization)
  Sender: FDA-Public Use
  Company Number: 200411009

PATIENT
  Age: 71 Year
  Sex: Female
  Weight: 43 kg

DRUGS (8)
  1. BOTOX [Suspect]
     Indication: MUSCLE SPASTICITY
     Dosage: 350 UNITS PRN IM
     Route: 030
     Dates: start: 20040827
  2. FENTANYL [Suspect]
     Indication: PAIN
     Dosage: DF
     Dates: start: 20040831
  3. CORDARONE [Concomitant]
  4. COUMADIN [Concomitant]
  5. UNSPECIFIED ACE INHIBITOR [Concomitant]
  6. SYNTHROID [Concomitant]
  7. OXYGEN [Concomitant]
  8. UNSPECIFIED DIURETIC [Concomitant]

REACTIONS (8)
  - ARTHROPATHY [None]
  - ASTHENIA [None]
  - CARDIAC FAILURE CONGESTIVE [None]
  - HYPOXIA [None]
  - PATHOLOGICAL FRACTURE [None]
  - PULMONARY OEDEMA [None]
  - SEDATION [None]
  - SPINAL FRACTURE [None]
